FAERS Safety Report 7292790-8 (Version None)
Quarter: 2011Q1

REPORT INFORMATION
  Report Type: 
  Country: None (occurrence: None)
  Receive Date: 20110203
  Receipt Date: 20110119
  Transmission Date: 20110831
  Serious: Yes (Hospitalization)
  Sender: FDA-Public Use
  Company Number: 025746

PATIENT
  Sex: Female

DRUGS (2)
  1. KEPPRA [Suspect]
  2. VALPROATE SODIUM [Suspect]

REACTIONS (2)
  - WHITE BLOOD CELL COUNT DECREASED [None]
  - LEUKAEMIA [None]
